FAERS Safety Report 20916839 (Version 1)
Quarter: 2022Q2

REPORT INFORMATION
  Report Type: Spontaneous
  Country: CA (occurrence: CA)
  Receive Date: 20220605
  Receipt Date: 20220605
  Transmission Date: 20220721
  Serious: Yes (Other)
  Sender: FDA-Public Use
  Company Number: CA-SAMSUNG BIOEPIS-SB-2021-12379

PATIENT
  Age: 30 Year
  Sex: Female
  Weight: 64 kg

DRUGS (5)
  1. INFLIXIMAB [Suspect]
     Active Substance: INFLIXIMAB
     Indication: Colitis ulcerative
     Route: 042
  2. HYDROMORPHONE [Concomitant]
     Active Substance: HYDROMORPHONE
     Indication: Product used for unknown indication
     Route: 048
  3. PANTOPRAZOLE [Concomitant]
     Active Substance: PANTOPRAZOLE
     Indication: Product used for unknown indication
     Dosage: AS REQUIRED
     Route: 065
  4. PREDNISONE [Concomitant]
     Active Substance: PREDNISONE
     Indication: Product used for unknown indication
     Route: 048
  5. AZATHIOPRINE [Concomitant]
     Active Substance: AZATHIOPRINE
     Indication: Colitis ulcerative
     Route: 065

REACTIONS (8)
  - Feeling abnormal [Unknown]
  - Arthralgia [Unknown]
  - Condition aggravated [Unknown]
  - Faecal calprotectin increased [Unknown]
  - Weight increased [Unknown]
  - Inflammatory bowel disease [Unknown]
  - Therapeutic response shortened [Unknown]
  - Off label use [Unknown]
